FAERS Safety Report 6317626-0 (Version None)
Quarter: 2009Q3

REPORT INFORMATION
  Report Type: 
  Country: None (occurrence: None)
  Receive Date: 20090821
  Receipt Date: 20090814
  Transmission Date: 20100115
  Serious: Yes (Death)
  Sender: FDA-Public Use
  Company Number: US-BRISTOL-MYERS SQUIBB COMPANY-14746820

PATIENT
  Age: 73 Year
  Sex: Female
  Weight: 72 kg

DRUGS (5)
  1. CETUXIMAB [Suspect]
     Indication: NON-SMALL CELL LUNG CANCER
     Route: 042
     Dates: start: 20090813, end: 20090813
  2. TAXOL [Suspect]
     Indication: NON-SMALL CELL LUNG CANCER
     Dosage: TAXOL GIVEN 17JUL07-NOV07 ONCE IN 14DAYS AS CONMED.
     Route: 042
     Dates: start: 20090813, end: 20090813
  3. CARBOPLATIN [Suspect]
     Indication: NON-SMALL CELL LUNG CANCER
     Dosage: FROM 17JUL07-NOV07 1 IN 14 DAYS AS CONMED.
     Route: 042
     Dates: start: 20090813, end: 20090813
  4. TAXOTERE [Concomitant]
     Indication: NON-SMALL CELL LUNG CANCER
     Route: 065
     Dates: start: 20071211, end: 20080507
  5. AVASTIN [Concomitant]
     Indication: NON-SMALL CELL LUNG CANCER
     Dosage: 300 MG  FROM JUN08-AUG08, MAY09-05JUN09,
     Route: 065
     Dates: start: 20071211, end: 20080507

REACTIONS (1)
  - SUDDEN DEATH [None]
